FAERS Safety Report 9250096 (Version 6)
Quarter: 2013Q4

REPORT INFORMATION
  Report Type: Spontaneous
  Country: US (occurrence: US)
  Receive Date: 20130424
  Receipt Date: 20131227
  Transmission Date: 20140711
  Serious: Yes (Hospitalization, Other)
  Sender: FDA-Public Use
  Company Number: US-BIOGENIDEC-2013BI035412

PATIENT
  Age: 64 Year
  Sex: Female
  Weight: 80 kg

DRUGS (20)
  1. AVONEX [Suspect]
     Indication: MULTIPLE SCLEROSIS
     Route: 030
     Dates: end: 20120423
  2. AVONEX [Suspect]
     Indication: MULTIPLE SCLEROSIS
     Route: 030
     Dates: start: 201302
  3. AMLODIPINE BESYLATE [Concomitant]
     Route: 048
  4. ATENOLOL [Concomitant]
     Route: 048
  5. BACLOFEN [Concomitant]
     Route: 048
  6. PLAVIX [Concomitant]
     Route: 048
  7. AMPYRA ER [Concomitant]
     Route: 048
  8. ARICEPT [Concomitant]
     Route: 048
  9. PROZAC [Concomitant]
     Route: 048
  10. IMDUR ER [Concomitant]
     Route: 048
  11. NAPROXEN SODIUM [Concomitant]
     Route: 048
  12. NITROGLYCERIN [Concomitant]
  13. SIMVASTATIN [Concomitant]
     Route: 048
  14. TEMAZEPAM [Concomitant]
     Route: 048
  15. DILANTIN [Concomitant]
     Route: 048
  16. ASPIR EC [Concomitant]
     Route: 048
  17. EVISTA [Concomitant]
     Route: 048
  18. MYRBETRIQ [Concomitant]
     Route: 048
  19. PRILOSEC DR [Concomitant]
     Route: 048
  20. GILENYA [Concomitant]

REACTIONS (14)
  - Carotid artery stenosis [Unknown]
  - Sleep apnoea syndrome [Unknown]
  - Essential hypertension [Unknown]
  - Migraine without aura [Unknown]
  - Migraine with aura [Unknown]
  - Osteoarthritis [Unknown]
  - Depression [Unknown]
  - Epilepsy [Recovered/Resolved]
  - Coronary artery disease [Unknown]
  - Convulsion [Recovered/Resolved]
  - Contusion [Recovered/Resolved with Sequelae]
  - Fall [Recovered/Resolved]
  - Multiple sclerosis [Recovered/Resolved with Sequelae]
  - Asthenia [Not Recovered/Not Resolved]
